FAERS Safety Report 15219981 (Version 2)
Quarter: 2018Q4

REPORT INFORMATION
  Report Type: Spontaneous
  Country: GB (occurrence: GB)
  Receive Date: 20180731
  Receipt Date: 20180809
  Transmission Date: 20190204
  Serious: Yes (Hospitalization)
  Sender: FDA-Public Use
  Company Number: GB-AUROBINDO-AUR-APL-2018-037151

PATIENT
  Sex: Male

DRUGS (1)
  1. IRBESARTAN/HYDROCHLOROTHIAZIDE FILM-COATED TABLETS 300MG/25MG [Suspect]
     Active Substance: HYDROCHLOROTHIAZIDE\IRBESARTAN
     Indication: HYPERTENSION
     Dosage: 1 DOSAGE FORM, ONCE A DAY
     Route: 065
     Dates: start: 20180710

REACTIONS (4)
  - Diplopia [Unknown]
  - Disorientation [Unknown]
  - Musculoskeletal stiffness [Unknown]
  - Vertigo [Unknown]

NARRATIVE: CASE EVENT DATE: 20180711
